FAERS Safety Report 10048549 (Version 2)
Quarter: 2014Q2

REPORT INFORMATION
  Report Type: Report from Study
  Country: US (occurrence: US)
  Receive Date: 20140331
  Receipt Date: 20140408
  Transmission Date: 20141212
  Serious: Yes (Other)
  Sender: FDA-Public Use
  Company Number: US-GILEAD-2014-0097671

PATIENT
  Sex: Male

DRUGS (3)
  1. SOFOSBUVIR [Suspect]
     Indication: CHRONIC HEPATITIS C
     Dosage: 400 MG, UNK
     Route: 065
     Dates: start: 20140128
  2. RIBAVIRIN [Concomitant]
  3. PEGASYS [Concomitant]

REACTIONS (7)
  - Mental impairment [Not Recovered/Not Resolved]
  - Nausea [Not Recovered/Not Resolved]
  - Pain [Not Recovered/Not Resolved]
  - Headache [Not Recovered/Not Resolved]
  - Depression [Unknown]
  - Fatigue [Not Recovered/Not Resolved]
  - Pruritus [Not Recovered/Not Resolved]
